FAERS Safety Report 9793490 (Version 1)
Quarter: 2014Q1

REPORT INFORMATION
  Report Type: Spontaneous
  Country: GB (occurrence: GB)
  Receive Date: 20140102
  Receipt Date: 20140102
  Transmission Date: 20141002
  Serious: Yes (Hospitalization)
  Sender: FDA-Public Use
  Company Number: GB-WATSON-2013-23775

PATIENT
  Age: 83 Year
  Sex: 0

DRUGS (9)
  1. OMEPRAZOLE (UNKNOWN) [Suspect]
     Indication: PRODUCT USED FOR UNKNOWN INDICATION
     Dosage: 40 MG, BID
     Route: 048
  2. CEFUROXIME SODIUM (UNKNOWN) [Suspect]
     Indication: ANTIBIOTIC PROPHYLAXIS
     Dosage: 1.5 G, UNKNOWN
     Route: 042
     Dates: start: 20111121, end: 20111121
  3. METRONIDAZOLE (UNKNOWN) [Suspect]
     Indication: ANTIBIOTIC PROPHYLAXIS
     Dosage: 500 MG, UNKNOWN
     Route: 042
     Dates: start: 20111121, end: 20111121
  4. DIPYRIDAMOLE [Concomitant]
     Indication: PRODUCT USED FOR UNKNOWN INDICATION
     Dosage: 200 MG BID. MODIFIED RELEASE
     Route: 048
  5. CO-CODAMOL [Concomitant]
     Indication: PRODUCT USED FOR UNKNOWN INDICATION
     Dosage: UNK. ONE OR TWO DOSES
     Route: 048
  6. ALFACALCIDOL [Concomitant]
     Indication: PRODUCT USED FOR UNKNOWN INDICATION
     Dosage: 250 NG, DAILY
     Route: 048
  7. SIMVASTATIN [Concomitant]
     Indication: PRODUCT USED FOR UNKNOWN INDICATION
     Dosage: 40 MG DAILY.AT NIGHT
     Route: 048
  8. ALENDRONIC ACID [Concomitant]
     Indication: PRODUCT USED FOR UNKNOWN INDICATION
     Dosage: 70 MG, 1/WEEK
     Route: 048
  9. TAZOCIN [Concomitant]
     Indication: PNEUMONIA
     Dosage: 4.5 G, TID
     Route: 042
     Dates: start: 20111003, end: 20111101

REACTIONS (1)
  - Clostridium difficile infection [Recovered/Resolved]
